FAERS Safety Report 8052666-5 (Version None)
Quarter: 2012Q1

REPORT INFORMATION
  Report Type: 
  Country: None (occurrence: None)
  Receive Date: 20120118
  Receipt Date: 20120118
  Transmission Date: 20120608
  Serious: Yes (Hospitalization)
  Sender: FDA-Public Use
  Company Number: None

PATIENT
  Age: 81 Year
  Sex: Male
  Weight: 92 kg

DRUGS (2)
  1. PRADAXA [Suspect]
     Indication: ATRIAL FIBRILLATION
     Dosage: 150MG
     Route: 048
     Dates: start: 20120113, end: 20120115
  2. LOVENOX [Concomitant]
     Dosage: 90MG
     Route: 058
     Dates: start: 20120113, end: 20120115

REACTIONS (1)
  - GASTROINTESTINAL HAEMORRHAGE [None]
